FAERS Safety Report 9433914 (Version 1)
Quarter: 2013Q3

REPORT INFORMATION
  Report Type: Spontaneous
  Country: US (occurrence: US)
  Receive Date: 20130801
  Receipt Date: 20130801
  Transmission Date: 20140515
  Serious: Yes (Other)
  Sender: FDA-Public Use
  Company Number: PHHY2013US080965

PATIENT
  Sex: 0

DRUGS (3)
  1. PACLITAXEL [Suspect]
     Route: 064
  2. DOXORUBICIN [Suspect]
     Route: 064
  3. CYCLOPHOSPHAMIDE [Suspect]
     Route: 064

REACTIONS (2)
  - Premature baby [Unknown]
  - Foetal exposure during pregnancy [Unknown]
